FAERS Safety Report 4484878-1 (Version None)
Quarter: 2004Q3

REPORT INFORMATION
  Report Type: 
  Country: None (occurrence: None)
  Receive Date: 20040921
  Receipt Date: 20030910
  Transmission Date: 20050211
  Serious: Yes (Other)
  Sender: FDA-Public Use
  Company Number: 163-20785-03090328

PATIENT
  Age: 53 Year
  Sex: Female

DRUGS (1)
  1. THALOMID [Suspect]
     Indication: HEPATIC CANCER METASTATIC
     Dosage: 200 MG, DAILY, ORAL
     Route: 048
     Dates: start: 20021001, end: 20030901

REACTIONS (3)
  - HAEMATOCHEZIA [None]
  - TERMINAL STATE [None]
  - UPPER GASTROINTESTINAL HAEMORRHAGE [None]
